FAERS Safety Report 4507273-5 (Version None)
Quarter: 2004Q4

REPORT INFORMATION
  Report Type: 
  Country: None (occurrence: None)
  Receive Date: 20041025
  Receipt Date: 20040521
  Transmission Date: 20050328
  Serious: Yes (Hospitalization)
  Sender: FDA-Public Use
  Company Number: US-JNJFOC-20040505500

PATIENT
  Age: 68 Year
  Sex: Male

DRUGS (3)
  1. REMICADE [Suspect]
     Indication: RHEUMATOID ARTHRITIS
     Dosage: 7.5 MG, 1 IN 1 WEEK, INTRAVENOUS
     Route: 042
     Dates: start: 20010315
  2. METHOTREXATE [Concomitant]
  3. BEXTRA [Concomitant]

REACTIONS (1)
  - NEPHROLITHIASIS [None]
